FAERS Safety Report 7782401-7 (Version None)
Quarter: 2011Q3

REPORT INFORMATION
  Report Type: 
  Country: None (occurrence: None)
  Receive Date: 20110927
  Receipt Date: 20110914
  Transmission Date: 20111222
  Serious: Yes (Death)
  Sender: FDA-Public Use
  Company Number: US-ELI_LILLY_AND_COMPANY-US201108008487

PATIENT
  Sex: Male
  Weight: 54 kg

DRUGS (1)
  1. PROZAC WEEKLY [Suspect]
     Indication: DEPRESSION
     Dosage: 1 DF, WEEKLY (1/W)

REACTIONS (2)
  - COMPLETED SUICIDE [None]
  - PERIPHERAL COLDNESS [None]
